FAERS Safety Report 8618396-3 (Version None)
Quarter: 2012Q3

REPORT INFORMATION
  Report Type: 
  Country: None (occurrence: None)
  Receive Date: 20120824
  Receipt Date: 20120821
  Transmission Date: 20120928
  Serious: No
  Sender: FDA-Public Use
  Company Number: US-BIOGENIDEC-2012BI032722

PATIENT
  Sex: Male

DRUGS (1)
  1. TYSABRI [Suspect]
     Indication: MULTIPLE SCLEROSIS
     Route: 042
     Dates: start: 20101118

REACTIONS (6)
  - URINARY TRACT INFECTION [None]
  - URINARY INCONTINENCE [None]
  - PYREXIA [None]
  - TREMOR [None]
  - ABASIA [None]
  - FAECAL INCONTINENCE [None]
